FAERS Safety Report 8350784-5 (Version None)
Quarter: 2012Q2

REPORT INFORMATION
  Report Type: 
  Country: None (occurrence: None)
  Receive Date: 20120510
  Receipt Date: 20120504
  Transmission Date: 20120825
  Serious: Yes (Congenital Anomaly)
  Sender: FDA-Public Use
  Company Number: FR-GLAXOSMITHKLINE-B0799602A

PATIENT
  Sex: Male

DRUGS (3)
  1. SINGULAIR [Concomitant]
     Route: 064
  2. NEXIUM [Concomitant]
     Dosage: 40MG PER DAY
     Route: 064
  3. PAROXETINE HYDROCHLORIDE [Suspect]
     Indication: DEPRESSION
     Dosage: 20MG PER DAY
     Route: 064
     Dates: end: 20120406

REACTIONS (5)
  - PATENT DUCTUS ARTERIOSUS [None]
  - FOETAL EXPOSURE DURING PREGNANCY [None]
  - VENTRICULAR SEPTAL DEFECT [None]
  - OXYGEN SATURATION DECREASED [None]
  - CYANOSIS [None]
